FAERS Safety Report 4461174-X (Version None)
Quarter: 2004Q3

REPORT INFORMATION
  Report Type: 
  Country: None (occurrence: None)
  Receive Date: 20040923
  Receipt Date: 20040923
  Transmission Date: 20050211
  Serious: Yes (Hospitalization)
  Sender: FDA-Public Use
  Company Number: None

PATIENT
  Age: 78 Year
  Sex: Male
  Weight: 71.8 kg

DRUGS (14)
  1. ENOXAPARIN SODIUM [Suspect]
     Indication: ANTICOAGULANT THERAPY
     Dosage: 40 MG QD SQ
     Route: 058
     Dates: start: 20040517, end: 20040622
  2. ACETYLSALICYLIC ACID [Suspect]
     Indication: PROPHYLAXIS
     Dosage: 325 MG QD PO
     Route: 048
     Dates: start: 19920201, end: 20040622
  3. ACETAMINOPHEN [Concomitant]
  4. ACETYLSALICYLIC ACID [Concomitant]
  5. AMIODARONE HCL [Concomitant]
  6. CLOTRIMAZOLE [Concomitant]
  7. CLOTRIMAZOLE [Concomitant]
  8. ENOXAPARIN SODIUM [Concomitant]
  9. LEVOTHYROXINE SODIUM [Concomitant]
  10. MULTI-VITAMIN [Concomitant]
  11. PINDOLOL [Concomitant]
  12. ZOLPIDEM TARTRATE [Concomitant]
  13. PROPOXYPHENE HCL AND ACETAMINOPHEN [Concomitant]
  14. TOPICAL HYDROCORTISONE [Concomitant]

REACTIONS (2)
  - METASTASES TO CENTRAL NERVOUS SYSTEM [None]
  - NON-SMALL CELL LUNG CANCER [None]
